FAERS Safety Report 12679966 (Version 1)
Quarter: 2016Q3

REPORT INFORMATION
  Report Type: Spontaneous
  Country: US (occurrence: None)
  Receive Date: 20160823
  Receipt Date: 20160823
  Transmission Date: 20161109
  Serious: Yes (Other)
  Sender: FDA-Public Use
  Company Number: None

PATIENT
  Age: 72 Year
  Sex: Male

DRUGS (1)
  1. GABAPENTIN 300MG ACTAVIS [Suspect]
     Active Substance: GABAPENTIN
     Dosage: 3 CAP (900MG) PO 4X/DAY
     Route: 048
     Dates: start: 20160715, end: 20160720

REACTIONS (3)
  - Abdominal discomfort [None]
  - Drug ineffective [None]
  - Product quality issue [None]

NARRATIVE: CASE EVENT DATE: 20160715
